FAERS Safety Report 8432999-0 (Version None)
Quarter: 2012Q2

REPORT INFORMATION
  Report Type: 
  Country: None (occurrence: None)
  Receive Date: 20120613
  Receipt Date: 20120607
  Transmission Date: 20120825
  Serious: Yes (Death)
  Sender: FDA-Public Use
  Company Number: SE-ROCHE-1076064

PATIENT
  Age: 70 Year
  Sex: Female

DRUGS (27)
  1. BRICANYL [Concomitant]
  2. VISCOTEARS [Concomitant]
  3. ETALPHA [Concomitant]
  4. FUROSEMIDE [Concomitant]
  5. DOXAZOSIN MESYLATE [Concomitant]
  6. NOVORAPID [Concomitant]
  7. CETIRIZINE HCL [Concomitant]
  8. MIRCERA [Concomitant]
  9. ACETYLCYSTEINE [Concomitant]
  10. FOSRENOL [Concomitant]
  11. MOVIPREP [Concomitant]
     Dosage: POWDER FOR ORAL SOLUTION IN SACHET
  12. HUMALOG [Concomitant]
  13. PERSANTIN DEPOT [Concomitant]
     Dosage: PROLONGED RELEASE
  14. LANTUS [Concomitant]
  15. OXYNORM [Concomitant]
  16. AMLODIPIN ACTAVIS [Concomitant]
  17. ACTEMRA [Suspect]
     Indication: RHEUMATOID ARTHRITIS
     Dosage: CCONCENTRATION 20MG/ML
     Route: 042
     Dates: start: 20120508, end: 20120508
  18. ATACAND [Concomitant]
  19. NATRIUMBIKARBONAT [Concomitant]
  20. ASPIRIN [Concomitant]
  21. SIMVASTATIN [Concomitant]
  22. SYMBICORT [Concomitant]
  23. OXYCONTIN [Concomitant]
     Dosage: PROLONGED RELEASE
  24. LEVOTHYROXINE SODIUM [Concomitant]
  25. ALVEDON [Concomitant]
  26. ORALOVITE [Concomitant]
  27. CANODERM [Concomitant]

REACTIONS (1)
  - SUDDEN DEATH [None]
